FAERS Safety Report 8516848-8 (Version None)
Quarter: 2012Q2

REPORT INFORMATION
  Report Type: 
  Country: None (occurrence: None)
  Receive Date: 20120406
  Receipt Date: 20091210
  Transmission Date: 20120825
  Serious: Yes (Other)
  Sender: FDA-Public Use
  Company Number: PHEH2009US17286

PATIENT
  Age: 18 Year
  Sex: Female
  Weight: 53 kg

DRUGS (2)
  1. TASIGNA [Suspect]
     Indication: CHRONIC MYELOID LEUKAEMIA
     Dosage: 400 MG, BID, ORAL
     Route: 048
     Dates: start: 20091020
  2. LASIX [Concomitant]

REACTIONS (2)
  - LIPASE INCREASED [None]
  - HYPERAMYLASAEMIA [None]
